APPROVED DRUG PRODUCT: CLOPIDOGREL BISULFATE
Active Ingredient: CLOPIDOGREL BISULFATE
Strength: EQ 300MG BASE
Dosage Form/Route: TABLET;ORAL
Application: A202266 | Product #002
Applicant: CHARTWELL RX SCIENCES LLC
Approved: Nov 20, 2012 | RLD: No | RS: No | Type: DISCN